FAERS Safety Report 13780910 (Version 1)
Quarter: 2017Q3

REPORT INFORMATION
  Report Type: Spontaneous
  Country: US (occurrence: US)
  Receive Date: 20170722
  Receipt Date: 20170722
  Transmission Date: 20171127
  Serious: Yes (Other)
  Sender: FDA-Public Use
  Company Number: None

PATIENT
  Age: 61 Year
  Sex: Male
  Weight: 157.5 kg

DRUGS (2)
  1. ERBITUX [Suspect]
     Active Substance: CETUXIMAB
     Indication: COLON CANCER STAGE IV
     Dosage: ?          OTHER FREQUENCY:WEEKLY;?
     Route: 042
     Dates: start: 20170612, end: 20170717
  2. ERBITUX [Suspect]
     Active Substance: CETUXIMAB
     Indication: PULMONARY MASS
     Dosage: ?          OTHER FREQUENCY:WEEKLY;?
     Route: 042
     Dates: start: 20170612, end: 20170717

REACTIONS (7)
  - Angina pectoris [None]
  - Acne [None]
  - Cough [None]
  - Haemorrhage [None]
  - Visual impairment [None]
  - Rash [None]
  - Respiration abnormal [None]

NARRATIVE: CASE EVENT DATE: 20170703
